FAERS Safety Report 8660478 (Version 2)
Quarter: 2013Q4

REPORT INFORMATION
  Report Type: Spontaneous
  Country: US (occurrence: None)
  Receive Date: 20120402
  Receipt Date: 20131226
  Transmission Date: 20140711
  Serious: Yes (Other)
  Sender: FDA-Public Use
  Company Number: PHEH2010US02257

PATIENT
  Sex: Female

DRUGS (6)
  1. EXFORGE [Suspect]
     Indication: HYPERTENSION
     Dosage: 1 DF (320/54MG), UNK, ORAL
     Route: 048
     Dates: start: 20091104, end: 20100205
  2. HYDROCHLOROTHIAZIDE [Suspect]
     Indication: HYPERTENSION
     Dosage: ORAL
     Route: 048
     Dates: start: 20091104, end: 20100214
  3. LAMISIL [Concomitant]
  4. VYTORIN [Concomitant]
  5. FOSAMAX [Concomitant]
  6. VALTURNA [Concomitant]

REACTIONS (4)
  - Urticaria [None]
  - Pruritus [None]
  - Rash [None]
  - Erythema [None]
